FAERS Safety Report 8003456-0 (Version None)
Quarter: 2011Q4

REPORT INFORMATION
  Report Type: 
  Country: None (occurrence: None)
  Receive Date: 20111222
  Receipt Date: 20111222
  Transmission Date: 20120403
  Serious: Yes (Life-Threatening, Hospitalization, Disabling)
  Sender: FDA-Public Use
  Company Number: None

PATIENT
  Age: 72 Year
  Sex: Female
  Weight: 58.967 kg

DRUGS (2)
  1. RECLAST [Suspect]
     Dosage: RECLAST 5 MG/100 ML SOLUTION
     Route: 042
  2. RECLAST [Concomitant]
     Dosage: RECLAST 5 MG/100 ML SOLUTION
     Route: 040

REACTIONS (2)
  - FEMUR FRACTURE [None]
  - HAEMORRHAGE [None]
